FAERS Safety Report 14279368 (Version 1)
Quarter: 2017Q4

REPORT INFORMATION
  Report Type: Report from Study
  Country: BR (occurrence: BR)
  Receive Date: 20171213
  Receipt Date: 20171213
  Transmission Date: 20180321
  Serious: Yes (Other)
  Sender: FDA-Public Use
  Company Number: BR-ROCHE-2009883

PATIENT
  Sex: Female
  Weight: 60 kg

DRUGS (11)
  1. CLENIL A [Concomitant]
     Active Substance: BECLOMETHASONE DIPROPIONATE
     Indication: PRODUCT USED FOR UNKNOWN INDICATION
     Route: 065
  2. SERETIDE [Concomitant]
     Active Substance: FLUTICASONE PROPIONATE\SALMETEROL XINAFOATE
     Indication: ASTHMA
     Dosage: 2 DF, QD (SINCE 2 YEARS AND 7 MONTHS)
     Route: 065
  3. XOLAIR [Suspect]
     Active Substance: OMALIZUMAB
     Indication: ASTHMA
     Dosage: 6 AMPOULES A MONTH?POWDER AND SOLVENT FOR SOLUTION FOR INJECTION?AS 3 DF.
     Route: 058
     Dates: start: 201509
  4. XOLAIR [Suspect]
     Active Substance: OMALIZUMAB
     Dosage: UNK?POWDER AND SOLVENT FOR SOLUTION FOR INJECTION
     Route: 058
     Dates: start: 20170805
  5. XOLAIR [Suspect]
     Active Substance: OMALIZUMAB
     Dosage: UNK?POWDER AND SOLVENT FOR SOLUTION FOR INJECTION
     Route: 058
     Dates: start: 20170904
  6. XOLAIR [Suspect]
     Active Substance: OMALIZUMAB
     Dosage: UNK?POWDER AND SOLVENT FOR SOLUTION FOR INJECTION
     Route: 058
     Dates: start: 20170928
  7. XOLAIR [Suspect]
     Active Substance: OMALIZUMAB
     Dosage: 450 MG, EVERY 15 DAYS?POWDER AND SOLVENT FOR SOLUTION FOR INJECTION
     Route: 058
     Dates: start: 2015
  8. AVAMYS [Concomitant]
     Active Substance: FLUTICASONE FUROATE
     Indication: ASTHMA
     Dosage: 2 DF, QD (SINCE TWO YEARS AND A HALF)
     Route: 045
  9. SINGULAIR [Concomitant]
     Active Substance: MONTELUKAST SODIUM
     Indication: ASTHMA
     Dosage: 1 DF, QD (SINCE 2 YEARS 7 MONTHS)
     Route: 048
  10. DESALEX [Concomitant]
     Active Substance: DESLORATADINE
     Indication: ASTHMA
     Dosage: 1 DF, QD (SINCE 2 YEARS AND A HALF)
     Route: 048
  11. SERETIDE [Concomitant]
     Active Substance: FLUTICASONE PROPIONATE\SALMETEROL XINAFOATE
     Dosage: 5 DF, QD
     Route: 065

REACTIONS (6)
  - Pain [Unknown]
  - Endometriosis [Recovering/Resolving]
  - Nausea [Unknown]
  - Cerebral disorder [Unknown]
  - Vomiting [Recovered/Resolved]
  - Headache [Recovered/Resolved]
